FAERS Safety Report 5275808-3 (Version None)
Quarter: 2007Q1

REPORT INFORMATION
  Report Type: 
  Country: None (occurrence: None)
  Receive Date: 20070326
  Receipt Date: 20070315
  Transmission Date: 20070707
  Serious: Yes (Other)
  Sender: FDA-Public Use
  Company Number: BW-GLAXOSMITHKLINE-B0463290A

PATIENT
  Sex: Female

DRUGS (2)
  1. TRIZIVIR [Suspect]
     Indication: ANTIVIRAL PROPHYLAXIS
     Dosage: 1TAB TWICE PER DAY
     Route: 048
     Dates: start: 20060824
  2. ZIDOVUDINE [Suspect]
     Indication: ANTIVIRAL PROPHYLAXIS
     Route: 048
     Dates: start: 20061011

REACTIONS (9)
  - ANAEMIA [None]
  - CARDIAC FAILURE CONGESTIVE [None]
  - COUGH [None]
  - DYSPNOEA [None]
  - OEDEMA PERIPHERAL [None]
  - ORTHOPNOEA [None]
  - PERIPARTUM CARDIOMYOPATHY [None]
  - PULMONARY OEDEMA [None]
  - TACHYCARDIA [None]
